FAERS Safety Report 22389680 (Version 1)
Quarter: 2023Q2

REPORT INFORMATION
  Report Type: Report from Study
  Country: FR (occurrence: FR)
  Receive Date: 20230531
  Receipt Date: 20230531
  Transmission Date: 20230721
  Serious: Yes (Hospitalization)
  Sender: FDA-Public Use
  Company Number: FR-UNICANCER-2023000337

PATIENT
  Age: 67 Year
  Sex: Female
  Weight: 70 kg

DRUGS (6)
  1. REGORAFENIB [Suspect]
     Active Substance: REGORAFENIB
     Indication: Gastrointestinal carcinoma
     Dosage: 160 MG
     Route: 048
     Dates: start: 20230511, end: 20230521
  2. AVELUMAB [Suspect]
     Active Substance: AVELUMAB
     Indication: Gastrointestinal carcinoma
     Dosage: UNK
  3. LEVOTHYROXINE [Concomitant]
     Active Substance: LEVOTHYROXINE
     Indication: Thyroid disorder
     Dosage: 150 ?G, QD
     Route: 048
  4. NEBIVOLOL [Concomitant]
     Active Substance: NEBIVOLOL
     Indication: Hypertension
     Dosage: 150 MG, QD
     Route: 048
  5. INNOHEP [Concomitant]
     Active Substance: TINZAPARIN SODIUM
     Indication: Venous thrombosis
     Dosage: 14000 IU
     Route: 048
     Dates: start: 202303
  6. LORAZEPAM [Concomitant]
     Active Substance: LORAZEPAM
     Indication: Venous thrombosis
     Dosage: 1 MG, QD
     Route: 048

REACTIONS (1)
  - Haemophagocytic lymphohistiocytosis [Not Recovered/Not Resolved]

NARRATIVE: CASE EVENT DATE: 20230522
